FAERS Safety Report 14099768 (Version 4)
Quarter: 2018Q1

REPORT INFORMATION
  Report Type: Report from Study
  Country: US (occurrence: US)
  Receive Date: 20171017
  Receipt Date: 20180103
  Transmission Date: 20180508
  Serious: Yes (Hospitalization)
  Sender: FDA-Public Use
  Company Number: US-PFIZER INC-2017415595

PATIENT
  Age: 78 Year
  Sex: Female

DRUGS (1)
  1. IBRANCE [Suspect]
     Active Substance: PALBOCICLIB
     Indication: BREAST CANCER
     Dosage: 125 MG, DAILY
     Route: 048
     Dates: start: 20170831

REACTIONS (10)
  - Blood pressure increased [Unknown]
  - Muscle spasms [Recovering/Resolving]
  - Drug dose omission [Unknown]
  - Hyperhidrosis [Unknown]
  - Night sweats [Unknown]
  - Fatigue [Unknown]
  - Nausea [Unknown]
  - Dizziness [Unknown]
  - White blood cell count decreased [Unknown]
  - Hot flush [Unknown]

NARRATIVE: CASE EVENT DATE: 2017
